FAERS Safety Report 10129183 (Version 1)
Quarter: 2014Q2

REPORT INFORMATION
  Report Type: Spontaneous
  Country: US (occurrence: None)
  Receive Date: 20140425
  Receipt Date: 20140425
  Transmission Date: 20141212
  Serious: No
  Sender: FDA-Public Use
  Company Number: None

PATIENT
  Sex: Female
  Weight: 60.33 kg

DRUGS (3)
  1. SELENIUM SULFIDE [Suspect]
     Indication: DANDRUFF
     Dates: start: 20140316
  2. SELENIUM SULFIDE [Suspect]
     Indication: SKIN DISORDER
     Dates: start: 20140316
  3. SELENIUM SULFIDE [Suspect]
     Indication: ARTHROPOD BITE
     Dates: start: 20140316

REACTIONS (2)
  - Hair colour changes [None]
  - Burning sensation [None]
